FAERS Safety Report 16267569 (Version 2)
Quarter: 2019Q3

REPORT INFORMATION
  Report Type: Report from Study
  Country: None (occurrence: US)
  Receive Date: 20190503
  Receipt Date: 20190905
  Transmission Date: 20191004
  Serious: Yes (Hospitalization)
  Sender: FDA-Public Use
  Company Number: US-ABBVIE-19K-163-2764363-00

PATIENT
  Sex: Female

DRUGS (2)
  1. HUMIRA [Suspect]
     Active Substance: ADALIMUMAB
     Route: 058
     Dates: start: 2019
  2. HUMIRA [Suspect]
     Active Substance: ADALIMUMAB
     Indication: RHEUMATOID ARTHRITIS
     Route: 058
     Dates: end: 201902

REACTIONS (6)
  - Sinusitis [Recovered/Resolved]
  - Thrombosis [Recovering/Resolving]
  - Aortic rupture [Unknown]
  - Hepatic enzyme increased [Unknown]
  - Pulmonary thrombosis [Recovering/Resolving]
  - Enzyme level increased [Unknown]

NARRATIVE: CASE EVENT DATE: 2019
